FAERS Safety Report 13523343 (Version 2)
Quarter: 2017Q3

REPORT INFORMATION
  Report Type: Spontaneous
  Country: US (occurrence: US)
  Receive Date: 20170508
  Receipt Date: 20170810
  Transmission Date: 20171127
  Serious: No
  Sender: FDA-Public Use
  Company Number: US-VIFOR (INTERNATIONAL) INC.-VIT-2017-02728

PATIENT
  Age: 70 Year
  Sex: Male

DRUGS (37)
  1. AMLODIPINE [Concomitant]
     Active Substance: AMLODIPINE BESYLATE
     Route: 048
     Dates: start: 20161230
  2. ISOSORBIDE MONONITRATE. [Concomitant]
     Active Substance: ISOSORBIDE MONONITRATE
     Route: 048
     Dates: start: 20161230
  3. KAYEXALATE [Concomitant]
     Active Substance: SODIUM POLYSTYRENE SULFONATE
     Route: 048
     Dates: start: 20161230
  4. LANTUS [Concomitant]
     Active Substance: INSULIN GLARGINE
     Route: 058
     Dates: start: 20161230
  5. DALRESP [Concomitant]
     Route: 048
     Dates: start: 20161230
  6. NORCO [Concomitant]
     Active Substance: ACETAMINOPHEN\HYDROCODONE BITARTRATE
     Route: 048
     Dates: start: 20161230
  7. OMEPRAZOLE. [Concomitant]
     Active Substance: OMEPRAZOLE
     Route: 048
     Dates: start: 20161230
  8. CHLORTALIDONE [Concomitant]
     Active Substance: CHLORTHALIDONE
     Route: 048
     Dates: start: 20161230
  9. FLUTICASONE. [Concomitant]
     Active Substance: FLUTICASONE
     Dates: start: 20161230
  10. NOVOLOG [Concomitant]
     Active Substance: INSULIN ASPART
     Route: 058
     Dates: start: 20161230
  11. PLAVIX [Concomitant]
     Active Substance: CLOPIDOGREL BISULFATE
     Route: 048
     Dates: start: 20161230
  12. THEOCHRON [Concomitant]
     Active Substance: THEOPHYLLINE ANHYDROUS
     Dates: start: 20161230
  13. VELTASSA [Suspect]
     Active Substance: PATIROMER
     Dates: start: 20161230
  14. ACETYLSALICYLIC ACID [Concomitant]
     Active Substance: ASPIRIN
     Route: 048
     Dates: start: 20161230
  15. FLOMAX [Concomitant]
     Active Substance: TAMSULOSIN HYDROCHLORIDE
     Route: 048
     Dates: start: 20161230
  16. HYDRALAZINE [Concomitant]
     Active Substance: HYDRALAZINE HYDROCHLORIDE
     Route: 048
     Dates: start: 20170310
  17. VELTASSA [Suspect]
     Active Substance: PATIROMER
     Indication: HYPERKALAEMIA
     Route: 048
     Dates: start: 20170224, end: 20170403
  18. KETOROLAC [Concomitant]
     Active Substance: KETOROLAC\KETOROLAC TROMETHAMINE
     Route: 048
     Dates: start: 20161230
  19. LYRICA [Concomitant]
     Active Substance: PREGABALIN
     Route: 048
     Dates: start: 20161230
  20. REGLAN [Concomitant]
     Active Substance: METOCLOPRAMIDE HYDROCHLORIDE
     Dates: start: 20161230
  21. AMLODIPINE [Concomitant]
     Active Substance: AMLODIPINE BESYLATE
     Dates: start: 20170310
  22. CREON [Concomitant]
     Active Substance: PANCRELIPASE AMYLASE\PANCRELIPASE LIPASE\PANCRELIPASE PROTEASE
     Route: 048
     Dates: start: 20161230
  23. ERGOCALCIFEROL. [Concomitant]
     Active Substance: ERGOCALCIFEROL
     Route: 048
     Dates: start: 20161230
  24. LASIX [Concomitant]
     Active Substance: FUROSEMIDE
     Route: 048
     Dates: start: 20161230
  25. VENTOLIN HFA [Concomitant]
     Active Substance: ALBUTEROL SULFATE
     Dates: start: 20161230
  26. SPIRIVA [Concomitant]
     Active Substance: TIOTROPIUM BROMIDE MONOHYDRATE
     Dates: start: 20161230
  27. ATORVASTATIN [Concomitant]
     Active Substance: ATORVASTATIN
     Route: 048
     Dates: start: 20161230
  28. EDARBI [Concomitant]
     Active Substance: AZILSARTAN KAMEDOXOMIL
     Route: 048
     Dates: start: 20161230
  29. FLEXPEN [Concomitant]
     Active Substance: UNSPECIFIED INGREDIENT
     Route: 058
     Dates: start: 20161230
  30. RANITIDINE HYDROCHLORIDE. [Concomitant]
     Active Substance: RANITIDINE HYDROCHLORIDE
     Route: 048
     Dates: start: 20161230
  31. VASCEPA [Concomitant]
     Active Substance: ICOSAPENT ETHYL
     Dates: start: 20161230
  32. ALBUTEROL. [Concomitant]
     Active Substance: ALBUTEROL
     Route: 048
     Dates: start: 20161230
  33. ATROVENT HFA AER [Concomitant]
     Dates: start: 20161230
  34. CARVEDILOL. [Concomitant]
     Active Substance: CARVEDILOL
     Route: 048
     Dates: start: 20161230
  35. PREDNISONE. [Concomitant]
     Active Substance: PREDNISONE
     Route: 048
     Dates: start: 20161230
  36. ZOLPIDEM TARTRATE. [Concomitant]
     Active Substance: ZOLPIDEM TARTRATE
     Dates: start: 20161230
  37. SYMBICORT [Concomitant]
     Active Substance: BUDESONIDE\FORMOTEROL FUMARATE DIHYDRATE
     Dates: start: 20161230

REACTIONS (1)
  - Pain [Unknown]

NARRATIVE: CASE EVENT DATE: 20170403
